FAERS Safety Report 24254688 (Version 2)
Quarter: 2025Q2

REPORT INFORMATION
  Report Type: Spontaneous
  Country: PL (occurrence: PL)
  Receive Date: 20240827
  Receipt Date: 20250609
  Transmission Date: 20250717
  Serious: Yes (Hospitalization)
  Sender: MYLAN
  Company Number: PL-MYLANLABS-2024M1077873

PATIENT
  Age: 23 Year
  Sex: Female

DRUGS (36)
  1. ARIPIPRAZOLE [Suspect]
     Active Substance: ARIPIPRAZOLE
     Indication: Schizophrenia
     Route: 065
  2. ARIPIPRAZOLE [Suspect]
     Active Substance: ARIPIPRAZOLE
     Indication: Autism spectrum disorder
  3. ARIPIPRAZOLE [Suspect]
     Active Substance: ARIPIPRAZOLE
  4. ARIPIPRAZOLE [Suspect]
     Active Substance: ARIPIPRAZOLE
     Route: 065
  5. ARIPIPRAZOLE [Suspect]
     Active Substance: ARIPIPRAZOLE
     Route: 065
  6. ARIPIPRAZOLE [Suspect]
     Active Substance: ARIPIPRAZOLE
  7. ARIPIPRAZOLE [Suspect]
     Active Substance: ARIPIPRAZOLE
  8. ARIPIPRAZOLE [Suspect]
     Active Substance: ARIPIPRAZOLE
     Route: 065
  9. QUETIAPINE [Suspect]
     Active Substance: QUETIAPINE
     Indication: Schizophrenia
  10. QUETIAPINE [Suspect]
     Active Substance: QUETIAPINE
     Indication: Autism spectrum disorder
     Route: 065
  11. QUETIAPINE [Suspect]
     Active Substance: QUETIAPINE
     Route: 065
  12. QUETIAPINE [Suspect]
     Active Substance: QUETIAPINE
  13. OLANZAPINE [Suspect]
     Active Substance: OLANZAPINE
     Indication: Schizophrenia
  14. OLANZAPINE [Suspect]
     Active Substance: OLANZAPINE
     Indication: Autism spectrum disorder
     Route: 065
  15. OLANZAPINE [Suspect]
     Active Substance: OLANZAPINE
     Route: 065
  16. OLANZAPINE [Suspect]
     Active Substance: OLANZAPINE
  17. CLOZAPINE [Suspect]
     Active Substance: CLOZAPINE
     Indication: Schizophrenia
     Dosage: 225 MILLIGRAM, QD
     Dates: start: 2012, end: 202202
  18. CLOZAPINE [Suspect]
     Active Substance: CLOZAPINE
     Indication: Autism spectrum disorder
     Dosage: 225 MILLIGRAM, QD
     Route: 065
     Dates: start: 2012, end: 202202
  19. CLOZAPINE [Suspect]
     Active Substance: CLOZAPINE
     Dosage: 225 MILLIGRAM, QD
     Route: 065
     Dates: start: 2012, end: 202202
  20. CLOZAPINE [Suspect]
     Active Substance: CLOZAPINE
     Dosage: 225 MILLIGRAM, QD
     Dates: start: 2012, end: 202202
  21. RISPERIDONE [Suspect]
     Active Substance: RISPERIDONE
     Indication: Schizophrenia
     Route: 065
  22. RISPERIDONE [Suspect]
     Active Substance: RISPERIDONE
     Indication: Autism spectrum disorder
  23. RISPERIDONE [Suspect]
     Active Substance: RISPERIDONE
  24. RISPERIDONE [Suspect]
     Active Substance: RISPERIDONE
     Route: 065
  25. RISPERIDONE [Suspect]
     Active Substance: RISPERIDONE
     Route: 065
  26. RISPERIDONE [Suspect]
     Active Substance: RISPERIDONE
  27. RISPERIDONE [Suspect]
     Active Substance: RISPERIDONE
  28. RISPERIDONE [Suspect]
     Active Substance: RISPERIDONE
     Route: 065
  29. HALOPERIDOL [Suspect]
     Active Substance: HALOPERIDOL
     Indication: Schizophrenia
  30. HALOPERIDOL [Suspect]
     Active Substance: HALOPERIDOL
     Indication: Autism spectrum disorder
     Route: 065
  31. HALOPERIDOL [Suspect]
     Active Substance: HALOPERIDOL
     Route: 065
  32. HALOPERIDOL [Suspect]
     Active Substance: HALOPERIDOL
  33. ZUCLOPENTHIXOL [Suspect]
     Active Substance: ZUCLOPENTHIXOL
     Indication: Schizophrenia
  34. ZUCLOPENTHIXOL [Suspect]
     Active Substance: ZUCLOPENTHIXOL
     Indication: Autism spectrum disorder
     Route: 065
  35. ZUCLOPENTHIXOL [Suspect]
     Active Substance: ZUCLOPENTHIXOL
     Route: 065
  36. ZUCLOPENTHIXOL [Suspect]
     Active Substance: ZUCLOPENTHIXOL

REACTIONS (2)
  - Neutropenia [Recovering/Resolving]
  - Drug ineffective [Unknown]
